FAERS Safety Report 5922294-3 (Version None)
Quarter: 2008Q4

REPORT INFORMATION
  Report Type: 
  Country: None (occurrence: None)
  Receive Date: 20081017
  Receipt Date: 20081006
  Transmission Date: 20090506
  Serious: Yes (Other)
  Sender: FDA-Public Use
  Company Number: AT-WATSON-2008-05952

PATIENT
  Age: 9 Year
  Sex: Female

DRUGS (2)
  1. PREDNISONE TAB [Suspect]
     Indication: MYELOID LEUKAEMIA
     Dosage: UNK
  2. CYCLOSPORINE [Suspect]
     Indication: MYELOID LEUKAEMIA
     Dosage: UNK

REACTIONS (2)
  - HISTIOCYTOSIS HAEMATOPHAGIC [None]
  - LYMPHOHISTIOCYTOSIS [None]
